FAERS Safety Report 10485343 (Version 1)
Quarter: 2014Q3

REPORT INFORMATION
  Report Type: Report from Study
  Country: US (occurrence: US)
  Receive Date: 20140930
  Receipt Date: 20140930
  Transmission Date: 20150326
  Serious: No
  Sender: FDA-Public Use
  Company Number: US-ALEXION-A200800819

PATIENT
  Sex: Female

DRUGS (2)
  1. LEXAPRO [Concomitant]
     Active Substance: ESCITALOPRAM OXALATE
     Indication: PRODUCT USED FOR UNKNOWN INDICATION
  2. SOLIRIS [Suspect]
     Active Substance: ECULIZUMAB
     Indication: PAROXYSMAL NOCTURNAL HAEMOGLOBINURIA
     Dosage: UNK
     Route: 042

REACTIONS (11)
  - Cholecystitis [Unknown]
  - Menorrhagia [Unknown]
  - Nasopharyngitis [Unknown]
  - Pyrexia [Unknown]
  - Jaundice [Unknown]
  - Oral herpes [Unknown]
  - Haemoglobinuria [Unknown]
  - Infection [Unknown]
  - Quality of life decreased [Not Recovered/Not Resolved]
  - Blood bilirubin increased [Unknown]
  - Chromaturia [Unknown]
